FAERS Safety Report 6831411-2 (Version None)
Quarter: 2010Q3

REPORT INFORMATION
  Report Type: 
  Country: None (occurrence: None)
  Receive Date: 20100707
  Receipt Date: 20100624
  Transmission Date: 20110219
  Serious: Yes (Hospitalization)
  Sender: FDA-Public Use
  Company Number: DKLU1063220

PATIENT

DRUGS (1)
  1. SABRIL [Suspect]
     Indication: INFANTILE SPASMS
     Dates: start: 20100601

REACTIONS (2)
  - ANAPHYLACTIC REACTION [None]
  - WRONG TECHNIQUE IN DRUG USAGE PROCESS [None]
